FAERS Safety Report 21312342 (Version 3)
Quarter: 2023Q2

REPORT INFORMATION
  Report Type: Spontaneous
  Country: US (occurrence: None)
  Receive Date: 20220909
  Receipt Date: 20230616
  Transmission Date: 20230721
  Serious: No
  Sender: FDA-Public Use
  Company Number: US-ARIS GLOBAL-202205-0974

PATIENT
  Age: 68 Year
  Sex: Female
  Weight: 47.216 kg

DRUGS (23)
  1. OXERVATE [Suspect]
     Active Substance: CENEGERMIN-BKBJ
     Indication: Neurotrophic keratopathy
     Route: 047
     Dates: start: 20220521, end: 20220713
  2. OXERVATE [Suspect]
     Active Substance: CENEGERMIN-BKBJ
     Route: 047
     Dates: start: 202303
  3. OXERVATE [Suspect]
     Active Substance: CENEGERMIN-BKBJ
     Route: 047
     Dates: start: 202305
  4. GINKGO [Concomitant]
     Active Substance: GINKGO
  5. DICYCLOMINE HYDROCHLORIDE [Concomitant]
     Active Substance: DICYCLOMINE HYDROCHLORIDE
  6. LEVOTHYROXINE SODIUM [Concomitant]
     Active Substance: LEVOTHYROXINE SODIUM
  7. LOTEMAX [Concomitant]
     Active Substance: LOTEPREDNOL ETABONATE
     Dosage: DROPS SUSPENSION
  8. BUTALBITAL-ACETAMINOPHEN-CAFFE [Concomitant]
  9. BETAMETHASONE DIPROPIONATE AUGMENTED [Concomitant]
     Active Substance: BETAMETHASONE DIPROPIONATE
  10. FML FORTE [Concomitant]
     Active Substance: FLUOROMETHOLONE
     Dosage: DROPS SUSPENSION
     Dates: start: 20230317, end: 20230327
  11. FLUOROMETHOLONE [Concomitant]
     Active Substance: FLUOROMETHOLONE
     Dosage: DROPS SUSPENSION
  12. RESTASIS [Concomitant]
     Active Substance: CYCLOSPORINE
  13. ENBREL [Concomitant]
     Active Substance: ETANERCEPT
  14. HERBALS\TURMERIC [Concomitant]
     Active Substance: HERBALS\TURMERIC
  15. VITAMIN B12 [Concomitant]
     Active Substance: CYANOCOBALAMIN
  16. VITAMINS [Concomitant]
     Active Substance: VITAMINS
  17. VITAMIN B COMPLEX-VITAMIN C [Concomitant]
  18. BIOTIN [Concomitant]
     Active Substance: BIOTIN
  19. TOPIRAMATE [Concomitant]
     Active Substance: TOPIRAMATE
  20. ALBUMIN COMPOUND [Concomitant]
     Dosage: 3-4 TIMES DAILY
     Dates: start: 20220224
  21. RIZATRIPTAN [Concomitant]
     Active Substance: RIZATRIPTAN
  22. ARTIFICIAL TEARS [Concomitant]
  23. PREDNISOLONE [Concomitant]
     Active Substance: PREDNISOLONE

REACTIONS (10)
  - Headache [Unknown]
  - Malaise [Unknown]
  - Fatigue [Not Recovered/Not Resolved]
  - Asthenopia [Unknown]
  - Skin discomfort [Recovered/Resolved]
  - Dry eye [Not Recovered/Not Resolved]
  - Swelling of eyelid [Unknown]
  - Ocular hyperaemia [Unknown]
  - Eye irritation [Not Recovered/Not Resolved]
  - Eye pain [Unknown]
